FAERS Safety Report 9508658 (Version 1)
Quarter: 2013Q3

REPORT INFORMATION
  Report Type: Report from Study
  Country: US (occurrence: US)
  Receive Date: 20130909
  Receipt Date: 20130909
  Transmission Date: 20140515
  Serious: Yes (Other)
  Sender: FDA-Public Use
  Company Number: US-ABBOTT-13P-163-1141195-00

PATIENT
  Age: 64 Year
  Sex: Female
  Weight: 47.22 kg

DRUGS (2)
  1. HUMIRA [Suspect]
     Indication: CROHN^S DISEASE
     Route: 058
     Dates: start: 201208
  2. PREDNISONE [Suspect]
     Indication: CROHN^S DISEASE
     Dosage: HIGH DOSES
     Dates: start: 1975

REACTIONS (1)
  - Cataract [Recovered/Resolved]
